FAERS Safety Report 5200813-2 (Version None)
Quarter: 2006Q4

REPORT INFORMATION
  Report Type: 
  Country: None (occurrence: None)
  Receive Date: 20061016
  Receipt Date: 20060713
  Transmission Date: 20070319
  Serious: No
  Sender: FDA-Public Use
  Company Number: 2006SP002703

PATIENT
  Age: 38 Year
  Sex: Female
  Weight: 69.4003 kg

DRUGS (6)
  1. LUNESTA [Suspect]
     Indication: INSOMNIA
     Dosage: 1 MG; ORAL
     Route: 048
     Dates: start: 20060706
  2. CYMBALTA [Concomitant]
  3. SOMA [Concomitant]
  4. VICODIN [Concomitant]
  5. VITAMIN CAP [Concomitant]
  6. XANAX [Concomitant]

REACTIONS (2)
  - FEELING ABNORMAL [None]
  - PARADOXICAL DRUG REACTION [None]
